FAERS Safety Report 20653059 (Version 1)
Quarter: 2022Q1

REPORT INFORMATION
  Report Type: Spontaneous
  Country: US (occurrence: None)
  Receive Date: 20220329
  Receipt Date: 20220329
  Transmission Date: 20220423
  Serious: Yes (Other)
  Sender: FDA-Public Use
  Company Number: None

PATIENT
  Age: 53 Year
  Sex: Female
  Weight: 64.4 kg

DRUGS (2)
  1. TIXAGEVIMAB [Suspect]
     Active Substance: TIXAGEVIMAB
     Indication: Exposure to SARS-CoV-2
     Dosage: OTHER FREQUENCY : ONCE;?
     Route: 030
     Dates: start: 20220328, end: 20220328
  2. TIXAGEVIMAB [Suspect]
     Active Substance: TIXAGEVIMAB
     Indication: COVID-19 prophylaxis

REACTIONS (3)
  - Injection site pain [None]
  - Pharyngeal swelling [None]
  - Throat irritation [None]

NARRATIVE: CASE EVENT DATE: 20220328
